FAERS Safety Report 18169108 (Version 2)
Quarter: 2020Q3

REPORT INFORMATION
  Report Type: Spontaneous
  Country: US (occurrence: US)
  Receive Date: 20200819
  Receipt Date: 20200820
  Transmission Date: 20201103
  Serious: No
  Sender: FDA-Public Use
  Company Number: US-PFIZER INC-2020320498

PATIENT
  Age: 59 Year
  Sex: Female
  Weight: 52.16 kg

DRUGS (1)
  1. CHANTIX [Suspect]
     Active Substance: VARENICLINE TARTRATE
     Indication: SMOKING CESSATION THERAPY
     Dosage: 1 MG, 2X/DAY (1MG BY MOUTH TWICE PER DAY/1 TABLET IN THE MORNING AND ONE IN THE EVENING)
     Route: 048
     Dates: start: 2013

REACTIONS (2)
  - Oropharyngeal pain [Recovered/Resolved]
  - Headache [Recovered/Resolved]
